FAERS Safety Report 9480799 (Version 1)
Quarter: 2013Q3

REPORT INFORMATION
  Report Type: Spontaneous
  Country: US (occurrence: US)
  Receive Date: 20130828
  Receipt Date: 20130828
  Transmission Date: 20140515
  Serious: Yes (Other)
  Sender: FDA-Public Use
  Company Number: US-AMGEN-KDL123201

PATIENT
  Age: 57 Year
  Sex: Male

DRUGS (1)
  1. ENBREL [Suspect]
     Indication: PSORIATIC ARTHROPATHY
     Dosage: 25 MG, 3 TIMES/WK
     Route: 058
     Dates: start: 20031201

REACTIONS (4)
  - Neoplasm [Unknown]
  - Psoriasis [Unknown]
  - Condition aggravated [Unknown]
  - Localised infection [Unknown]
